FAERS Safety Report 6991853-1 (Version None)
Quarter: 2010Q3

REPORT INFORMATION
  Report Type: 
  Country: None (occurrence: None)
  Receive Date: 20100916
  Receipt Date: 20100916
  Transmission Date: 20110219
  Serious: Yes (Hospitalization)
  Sender: FDA-Public Use
  Company Number: None

PATIENT
  Age: 68 Year
  Sex: Female
  Weight: 61.5 kg

DRUGS (10)
  1. OFATUMUMAB GSK [Suspect]
     Indication: NON-HODGKIN'S LYMPHOMA
     Dosage: 300MG WEEKLY IV
     Route: 042
     Dates: start: 20100910, end: 20100910
  2. DIGOXIN [Concomitant]
  3. FENTANYL CITRATE [Concomitant]
  4. FLEXERIL [Concomitant]
  5. GLUCOSAMINE MG [Concomitant]
  6. METOPROLOL TARTRATE [Concomitant]
  7. M.V.I. [Concomitant]
  8. PROCHLORPERAZINE [Concomitant]
  9. VIT B [Concomitant]
  10. VB12 [Concomitant]

REACTIONS (1)
  - DIARRHOEA [None]
